FAERS Safety Report 25793581 (Version 1)
Quarter: 2025Q3

REPORT INFORMATION
  Report Type: Spontaneous
  Country: US (occurrence: US)
  Receive Date: 20250912
  Receipt Date: 20250912
  Transmission Date: 20251020
  Serious: No
  Sender: AMGEN
  Company Number: US-AMGEN-USASP2025178109

PATIENT
  Age: 53 Year
  Sex: Female

DRUGS (1)
  1. REPATHA [Suspect]
     Active Substance: EVOLOCUMAB
     Indication: Arteriosclerosis
     Dosage: UNK UNK, Q2WK
     Route: 065
     Dates: start: 20250801

REACTIONS (3)
  - Vertigo [Recovered/Resolved]
  - Urticaria [Recovered/Resolved]
  - Rash [Recovered/Resolved]

NARRATIVE: CASE EVENT DATE: 20250801
